FAERS Safety Report 7517548-3 (Version None)
Quarter: 2011Q2

REPORT INFORMATION
  Report Type: 
  Country: None (occurrence: None)
  Receive Date: 20110601
  Receipt Date: 20110518
  Transmission Date: 20111010
  Serious: Yes (Hospitalization)
  Sender: FDA-Public Use
  Company Number: IE-ELI_LILLY_AND_COMPANY-IE201105005078

PATIENT
  Sex: Female

DRUGS (5)
  1. CALCICHEW [Concomitant]
  2. FORTEO [Suspect]
     Indication: OSTEOPOROSIS
     Dosage: 20 UG, UNK
     Dates: start: 20110413
  3. TRITACE [Concomitant]
  4. NU-SEALS ASPIRIN [Concomitant]
  5. ISOMEL [Concomitant]

REACTIONS (2)
  - HAEMORRHAGE [None]
  - ANGIOGRAM [None]
